FAERS Safety Report 5888684-2 (Version None)
Quarter: 2008Q3

REPORT INFORMATION
  Report Type: 
  Country: None (occurrence: None)
  Receive Date: 20080917
  Receipt Date: 20080529
  Transmission Date: 20090109
  Serious: Yes (Hospitalization)
  Sender: FDA-Public Use
  Company Number: 000355

PATIENT
  Age: 28 Year
  Sex: Male

DRUGS (6)
  1. BUSULFEX [Suspect]
     Indication: STEM CELL TRANSPLANT
     Dosage: INTRAVENOUS
     Route: 042
     Dates: start: 20070725, end: 20070725
  2. BUSULFEX [Suspect]
     Indication: STEM CELL TRANSPLANT
     Dosage: INTRAVENOUS
     Route: 042
     Dates: start: 20070726, end: 20070728
  3. BUSULFEX [Suspect]
     Indication: STEM CELL TRANSPLANT
     Dosage: INTRAVENOUS
     Route: 042
     Dates: start: 20070729, end: 20070729
  4. CYCLOPHOSPHAMIDE [Suspect]
     Dates: start: 20070729, end: 20070730
  5. PHENYTOIN [Concomitant]
  6. NARTOGRASTIM (NARTOGRASTIM) [Concomitant]

REACTIONS (5)
  - ACUTE GRAFT VERSUS HOST DISEASE [None]
  - DIARRHOEA [None]
  - FEBRILE NEUTROPENIA [None]
  - STOMATITIS [None]
  - THROMBOTIC MICROANGIOPATHY [None]
